FAERS Safety Report 16774310 (Version 6)
Quarter: 2020Q4

REPORT INFORMATION
  Report Type: Spontaneous
  Country: US (occurrence: US)
  Receive Date: 20190905
  Receipt Date: 20201109
  Transmission Date: 20210113
  Serious: No
  Sender: FDA-Public Use
  Company Number: US-BRISTOL-MYERS SQUIBB COMPANY-BMS-2019-086654

PATIENT
  Sex: Female

DRUGS (2)
  1. ORENCIA [Suspect]
     Active Substance: ABATACEPT
     Indication: RHEUMATOID ARTHRITIS
     Dosage: 125 MILLIGRAM, QWK
     Route: 058
     Dates: start: 20190507
  2. ORENCIA [Suspect]
     Active Substance: ABATACEPT
     Indication: CUTANEOUS LUPUS ERYTHEMATOSUS
     Dosage: 125 MILLIGRAM, QWK
     Route: 058
     Dates: start: 20190514

REACTIONS (5)
  - Nausea [Unknown]
  - Dyspnoea [Unknown]
  - Fatigue [Unknown]
  - Headache [Unknown]
  - Upper respiratory tract infection [Unknown]
